FAERS Safety Report 5085924-7 (Version None)
Quarter: 2006Q3

REPORT INFORMATION
  Report Type: 
  Country: None (occurrence: None)
  Receive Date: 20060817
  Receipt Date: 20060518
  Transmission Date: 20061208
  Serious: Yes (Hospitalization)
  Sender: FDA-Public Use
  Company Number: 2006097174

PATIENT
  Age: 35 Year
  Sex: Male

DRUGS (2)
  1. CEFPODOXIME PROXETIL [Suspect]
     Indication: TONSILLITIS
     Dosage: ORAL
     Route: 048
     Dates: start: 20060130, end: 20060201
  2. CLARITHROMYCIN [Suspect]
     Indication: TONSILLITIS
     Dosage: ORAL
     Route: 048
     Dates: start: 20060125, end: 20060130

REACTIONS (6)
  - COUGH [None]
  - ERYTHEMA MULTIFORME [None]
  - MUCOSAL EROSION [None]
  - ORAL FUNGAL INFECTION [None]
  - PYREXIA [None]
  - RASH PAPULAR [None]
